FAERS Safety Report 5396799-0 (Version None)
Quarter: 2007Q3

REPORT INFORMATION
  Report Type: 
  Country: None (occurrence: None)
  Receive Date: 20070725
  Receipt Date: 20060927
  Transmission Date: 20080115
  Serious: No
  Sender: FDA-Public Use
  Company Number: US-AMGEN-KDL195067

PATIENT
  Sex: Female

DRUGS (4)
  1. PROCRIT [Suspect]
     Indication: MYELODYSPLASTIC SYNDROME
     Dates: start: 20040101
  2. THEOPHYLLINE [Suspect]
  3. PREDNISONE [Concomitant]
  4. BLOOD CELLS, PACKED HUMAN [Concomitant]

REACTIONS (1)
  - INJECTION SITE PAIN [None]
